FAERS Safety Report 4491902-9 (Version None)
Quarter: 2004Q4

REPORT INFORMATION
  Report Type: 
  Country: None (occurrence: None)
  Receive Date: 20041101
  Receipt Date: 20041022
  Transmission Date: 20050328
  Serious: Yes (Life-Threatening)
  Sender: FDA-Public Use
  Company Number: 2004AP05469

PATIENT
  Age: 34 Year
  Sex: Female

DRUGS (2)
  1. NOLVADEX [Suspect]
     Indication: BREAST CANCER
     Dosage: 20 MG DAILY PO
     Route: 048
     Dates: start: 20031101, end: 20041022
  2. CHITOSAN [Concomitant]

REACTIONS (2)
  - BONE MARROW TRANSPLANT [None]
  - MYELODYSPLASTIC SYNDROME [None]
